FAERS Safety Report 7843990 (Version 5)
Quarter: 2013Q1

REPORT INFORMATION
  Report Type: Report from Study
  Country: DE (occurrence: DE)
  Receive Date: 20110307
  Receipt Date: 20130122
  Transmission Date: 20140127
  Serious: Yes (Death, Life-Threatening, Hospitalization, Other)
  Sender: FDA-Public Use
  Company Number: DE-BRISTOL-MYERS SQUIBB COMPANY-15578743

PATIENT
  Age: 60 Year
  Sex: Male
  Weight: 95 kg

DRUGS (10)
  1. CISPLATIN [Suspect]
     Indication: NON-SMALL CELL LUNG CANCER STAGE IV
     Route: 065
     Dates: start: 20110121, end: 20110121
  2. ALIMTA [Suspect]
     Indication: NON-SMALL CELL LUNG CANCER STAGE IV
     Route: 065
     Dates: start: 20110121, end: 20110121
  3. ACETYLSALICYLIC ACID [Concomitant]
     Dates: end: 20110208
  4. METOPROLOL TARTRATE [Concomitant]
     Dates: end: 20110127
  5. EPROSARTAN MESILATE [Concomitant]
     Dates: end: 20110127
  6. NUTRIFLEX [Concomitant]
     Dates: start: 20110127, end: 20110205
  7. CERNEVIT [Concomitant]
     Dates: start: 20110127, end: 20110205
  8. FOLIC ACID [Concomitant]
  9. VITAMIN B12 [Concomitant]
  10. DEXAMETHASONE [Concomitant]

REACTIONS (4)
  - Septic shock [Fatal]
  - Diverticular perforation [Fatal]
  - Leukopenia [Recovered/Resolved]
  - Circulatory collapse [Recovered/Resolved]
